FAERS Safety Report 17583474 (Version 1)
Quarter: 2020Q1

REPORT INFORMATION
  Report Type: Spontaneous
  Country: US (occurrence: US)
  Receive Date: 20200326
  Receipt Date: 20200326
  Transmission Date: 20200409
  Serious: No
  Sender: FDA-Public Use
  Company Number: US-SHIRE-US202010843

PATIENT
  Sex: Male

DRUGS (1)
  1. TAKHZYRO [Suspect]
     Active Substance: LANADELUMAB-FLYO
     Indication: PRODUCT USED FOR UNKNOWN INDICATION
     Dosage: 350 MILLILITER, 1X/2WKS
     Route: 058
     Dates: start: 20190910

REACTIONS (2)
  - Hereditary angioedema [Recovered/Resolved]
  - Product dose omission [Recovered/Resolved]
